FAERS Safety Report 5343516-6 (Version None)
Quarter: 2007Q2

REPORT INFORMATION
  Report Type: 
  Country: None (occurrence: None)
  Receive Date: 20070604
  Receipt Date: 20070523
  Transmission Date: 20071010
  Serious: Yes (Hospitalization)
  Sender: FDA-Public Use
  Company Number: CA-JNJFOC-20060605003

PATIENT
  Age: 5 Decade
  Sex: Male

DRUGS (6)
  1. REMICADE [Suspect]
     Route: 042
  2. REMICADE [Suspect]
     Indication: CROHN'S DISEASE
     Route: 042
  3. HEPARIN [Concomitant]
  4. PURINETHOL [Concomitant]
     Route: 048
  5. VITAMIN D [Concomitant]
     Route: 048
  6. CALCIUM CHLORIDE [Concomitant]
     Route: 048

REACTIONS (3)
  - ABDOMINAL PAIN [None]
  - ABSCESS INTESTINAL [None]
  - DIARRHOEA [None]
